FAERS Safety Report 6691089-8 (Version None)
Quarter: 2010Q2

REPORT INFORMATION
  Report Type: 
  Country: None (occurrence: None)
  Receive Date: 20100422
  Receipt Date: 20100413
  Transmission Date: 20101027
  Serious: Yes (Hospitalization)
  Sender: FDA-Public Use
  Company Number: 2008BI004117

PATIENT
  Age: 33 Year
  Sex: Female

DRUGS (3)
  1. AVONEX [Suspect]
     Indication: MULTIPLE SCLEROSIS
     Route: 030
     Dates: start: 19970801, end: 19980301
  2. AVONEX [Suspect]
     Route: 030
     Dates: start: 19981201
  3. AVONEX [Suspect]
     Route: 030
     Dates: start: 20071001

REACTIONS (2)
  - FEMALE STERILISATION [None]
  - INFECTION [None]
